FAERS Safety Report 8008911-5 (Version None)
Quarter: 2011Q4

REPORT INFORMATION
  Report Type: 
  Country: None (occurrence: None)
  Receive Date: 20111227
  Receipt Date: 20111221
  Transmission Date: 20120403
  Serious: Yes (Death, Hospitalization)
  Sender: FDA-Public Use
  Company Number: JP-CELGENEUS-087-50794-11120807

PATIENT
  Sex: Male

DRUGS (16)
  1. ITRACONAZOLE [Concomitant]
     Route: 065
  2. POLYGAM S/D [Concomitant]
     Route: 065
  3. GANCICLOVIR [Concomitant]
     Route: 065
  4. SULFAMETHOXAZOLE AND TRIMETHOPRIM [Concomitant]
     Route: 065
  5. OMEGACIN [Concomitant]
     Route: 065
  6. MEROPENEM [Concomitant]
     Route: 065
  7. VIDAZA [Suspect]
     Indication: MYELODYSPLASTIC SYNDROME
     Route: 041
     Dates: start: 20111014, end: 20111020
  8. OMEPRAZOLE [Concomitant]
     Route: 065
  9. FIRSTCIN [Concomitant]
     Route: 065
  10. AMBISOME [Concomitant]
     Route: 065
  11. CONIEL [Concomitant]
     Route: 065
  12. ZOSYN [Concomitant]
     Route: 065
  13. ELASPOL [Concomitant]
     Route: 065
  14. MAXIPIME [Concomitant]
     Route: 065
  15. LEVOFLOXACIN [Concomitant]
     Route: 065
  16. VANCOMYCIN HYCHLORIDE [Concomitant]
     Route: 065

REACTIONS (1)
  - PNEUMONIA [None]
